FAERS Safety Report 6373777-6 (Version None)
Quarter: 2009Q3

REPORT INFORMATION
  Report Type: 
  Country: None (occurrence: None)
  Receive Date: 20090924
  Receipt Date: 20090529
  Transmission Date: 20100115
  Serious: No
  Sender: FDA-Public Use
  Company Number: US-ASTRAZENECA-2009UW13778

PATIENT
  Age: 62 Year
  Sex: Male
  Weight: 59 kg

DRUGS (12)
  1. SEROQUEL [Suspect]
     Indication: DEPRESSION
     Route: 048
  2. SEROQUEL [Suspect]
     Indication: ANXIETY
     Route: 048
  3. SEROQUEL [Suspect]
     Route: 048
     Dates: start: 20090527
  4. SEROQUEL [Suspect]
     Route: 048
     Dates: start: 20090527
  5. SEROQUEL [Suspect]
     Route: 048
  6. SEROQUEL [Suspect]
     Route: 048
  7. KLONOPIN [Concomitant]
     Indication: SLEEP DISORDER
  8. LUNESTA [Concomitant]
  9. AMBIEN [Concomitant]
  10. LIPITOR [Concomitant]
  11. REMERON [Concomitant]
  12. XANAX [Concomitant]

REACTIONS (7)
  - AGITATION [None]
  - ANXIETY [None]
  - DEPRESSION [None]
  - DRUG INEFFECTIVE [None]
  - FEELING JITTERY [None]
  - GLUCOSE TOLERANCE IMPAIRED [None]
  - SLEEP DISORDER [None]
